FAERS Safety Report 7475014-8 (Version None)
Quarter: 2011Q2

REPORT INFORMATION
  Report Type: 
  Country: None (occurrence: None)
  Receive Date: 20110505
  Receipt Date: 20110224
  Transmission Date: 20111010
  Serious: Yes (Death, Other)
  Sender: FDA-Public Use
  Company Number: IT-ACCORD-008180

PATIENT
  Age: 48 Year
  Sex: Female

DRUGS (4)
  1. GEMCITABINE [Suspect]
     Indication: PRODUCT USED FOR UNKNOWN INDICATION
  2. PACLITAXEL [Suspect]
     Indication: BREAST CANCER
     Dosage: 90.00-MG/M2-
  3. VINORELBINE [Suspect]
     Indication: PRODUCT USED FOR UNKNOWN INDICATION
  4. BEVACIZUMAB (BEVACIZUMAB) [Suspect]
     Indication: BREAST CANCER
     Dosage: 10.00-MG/KG-

REACTIONS (8)
  - NASAL SEPTUM PERFORATION [None]
  - NASAL CONGESTION [None]
  - NASAL NECROSIS [None]
  - NEOPLASM PROGRESSION [None]
  - NASAL DISCOMFORT [None]
  - EPISTAXIS [None]
  - RHINORRHOEA [None]
  - BREAST CANCER FEMALE [None]
